FAERS Safety Report 5028771-4 (Version None)
Quarter: 2006Q2

REPORT INFORMATION
  Report Type: 
  Country: None (occurrence: None)
  Receive Date: 20060501
  Receipt Date: 20060123
  Transmission Date: 20061013
  Serious: Yes (Hospitalization)
  Sender: FDA-Public Use
  Company Number: 200610825US

PATIENT
  Sex: Female

DRUGS (3)
  1. KETEK [Suspect]
     Dosage: PO
     Route: 048
  2. LIPITOR [Concomitant]
  3. LEVAQUIN [Concomitant]

REACTIONS (1)
  - JAUNDICE CHOLESTATIC [None]
